FAERS Safety Report 5437768-1 (Version None)
Quarter: 2007Q3

REPORT INFORMATION
  Report Type: 
  Country: None (occurrence: None)
  Receive Date: 20070831
  Receipt Date: 20070731
  Transmission Date: 20080115
  Serious: No
  Sender: FDA-Public Use
  Company Number: A0667045A

PATIENT
  Sex: Female

DRUGS (1)
  1. ALLI [Suspect]

REACTIONS (7)
  - ABDOMINAL PAIN UPPER [None]
  - ANOREXIA [None]
  - BACK PAIN [None]
  - DIZZINESS [None]
  - FAECES DISCOLOURED [None]
  - FAECES PALE [None]
  - NAUSEA [None]
